FAERS Safety Report 10865324 (Version 3)
Quarter: 2016Q3

REPORT INFORMATION
  Report Type: Report from Study
  Country: US (occurrence: US)
  Receive Date: 20150224
  Receipt Date: 20160729
  Transmission Date: 20161109
  Serious: Yes (Other)
  Sender: FDA-Public Use
  Company Number: US-MYLANLABS-2014M1010362

PATIENT
  Sex: Female
  Weight: 91.61 kg

DRUGS (9)
  1. AMNESTEEM [Suspect]
     Active Substance: ISOTRETINOIN
     Indication: KERATOSIS FOLLICULAR
     Dosage: 40 MG, QD
     Route: 048
     Dates: start: 20140527, end: 20141001
  2. AMNESTEEM [Suspect]
     Active Substance: ISOTRETINOIN
     Indication: OFF LABEL USE
  3. CLARAVIS [Suspect]
     Active Substance: ISOTRETINOIN
     Dosage: UNK
     Dates: start: 2014, end: 2014
  4. CLARAVIS [Suspect]
     Active Substance: ISOTRETINOIN
     Indication: HIDRADENITIS
  5. ORTHO-TRI-CYCLEN 21 [Concomitant]
  6. LYRICA [Concomitant]
     Active Substance: PREGABALIN
  7. TRAMADOL. [Concomitant]
     Active Substance: TRAMADOL
  8. AMNESTEEM [Suspect]
     Active Substance: ISOTRETINOIN
     Indication: HIDRADENITIS
  9. CLARAVIS [Suspect]
     Active Substance: ISOTRETINOIN
     Indication: KERATOSIS FOLLICULAR

REACTIONS (2)
  - Drug ineffective for unapproved indication [Not Recovered/Not Resolved]
  - Staphylococcal infection [Not Recovered/Not Resolved]

NARRATIVE: CASE EVENT DATE: 2014
